FAERS Safety Report 12442583 (Version 5)
Quarter: 2017Q2

REPORT INFORMATION
  Report Type: Spontaneous
  Country: US (occurrence: US)
  Receive Date: 20160607
  Receipt Date: 20170411
  Transmission Date: 20170830
  Serious: Yes (Hospitalization, Other)
  Sender: FDA-Public Use
  Company Number: US-DSJP-DSU-2015-134295

PATIENT
  Age: 63 Year
  Sex: Male
  Weight: 71.66 kg

DRUGS (4)
  1. BENICAR [Suspect]
     Active Substance: OLMESARTAN MEDOXOMIL
     Dosage: UNK
  2. BENICAR [Suspect]
     Active Substance: OLMESARTAN MEDOXOMIL
     Indication: HYPERTENSION
     Dosage: 20 MG, QD
     Route: 048
     Dates: start: 201107, end: 201509
  3. BENICAR HCT [Suspect]
     Active Substance: HYDROCHLOROTHIAZIDE\OLMESARTAN MEDOXOMIL
     Indication: HYPERTENSION
     Dosage: 20MG/12.5 MG
     Dates: start: 201107, end: 201407
  4. BENICAR HCT [Suspect]
     Active Substance: HYDROCHLOROTHIAZIDE\OLMESARTAN MEDOXOMIL
     Dosage: 40/25 MG , QD

REACTIONS (14)
  - Crohn^s disease [Not Recovered/Not Resolved]
  - Large intestine polyp [Recovered/Resolved]
  - Granuloma [Unknown]
  - Renal disorder [Unknown]
  - Colitis ulcerative [Unknown]
  - Haemorrhoids [Recovering/Resolving]
  - Renal cyst [Recovering/Resolving]
  - Gastrooesophageal reflux disease [Unknown]
  - Anxiety [Unknown]
  - Large intestinal stenosis [Unknown]
  - Gastrointestinal viral infection [Unknown]
  - Dizziness [Unknown]
  - Malabsorption [Recovered/Resolved]
  - Diverticulum [Unknown]

NARRATIVE: CASE EVENT DATE: 2012
